FAERS Safety Report 8585275-X (Version None)
Quarter: 2012Q3

REPORT INFORMATION
  Report Type: 
  Country: None (occurrence: None)
  Receive Date: 20120810
  Receipt Date: 20120808
  Transmission Date: 20120928
  Serious: Yes (Hospitalization)
  Sender: FDA-Public Use
  Company Number: PHHY2010JP66976

PATIENT
  Age: 17 Year
  Sex: Male

DRUGS (6)
  1. CLORAZEPATE DIPOTASSIUM [Concomitant]
     Indication: FRONTAL LOBE EPILEPSY
  2. CLOXAZOLAM [Concomitant]
     Indication: FRONTAL LOBE EPILEPSY
  3. CARBAMAZEPINE [Suspect]
     Indication: FRONTAL LOBE EPILEPSY
     Route: 048
  4. VALPROATE SODIUM [Concomitant]
     Indication: FRONTAL LOBE EPILEPSY
  5. ZONISAMIDE [Concomitant]
     Indication: FRONTAL LOBE EPILEPSY
  6. YOKUKAN-SAN [Concomitant]

REACTIONS (5)
  - SUICIDE ATTEMPT [None]
  - FLASHBACK [None]
  - TOXICITY TO VARIOUS AGENTS [None]
  - INTENTIONAL OVERDOSE [None]
  - CONVULSION [None]
